FAERS Safety Report 5506841-1 (Version None)
Quarter: 2007Q4

REPORT INFORMATION
  Report Type: 
  Country: None (occurrence: None)
  Receive Date: 20071105
  Receipt Date: 20071025
  Transmission Date: 20080405
  Serious: Yes (Other)
  Sender: FDA-Public Use
  Company Number: FR-SANOFI-SYNTHELABO-A01200712073

PATIENT
  Age: 55 Year
  Sex: Female

DRUGS (1)
  1. PLAVIX [Suspect]
     Indication: STENT PLACEMENT
     Route: 048

REACTIONS (3)
  - ARTHRALGIA [None]
  - MYALGIA [None]
  - SYSTEMIC LUPUS ERYTHEMATOSUS [None]
